FAERS Safety Report 5799058-7 (Version None)
Quarter: 2008Q3

REPORT INFORMATION
  Report Type: 
  Country: None (occurrence: None)
  Receive Date: 20080702
  Receipt Date: 20080625
  Transmission Date: 20090109
  Serious: Yes (Life-Threatening, Hospitalization)
  Sender: FDA-Public Use
  Company Number: US-BAXTER-2008BH006524

PATIENT
  Age: 57 Year
  Sex: Male
  Weight: 108 kg

DRUGS (3)
  1. HEPARIN SODIUM INJECTION [Suspect]
     Indication: PROPHYLAXIS
     Dosage: DOSE UNIT:UNKNOWN
     Route: 042
     Dates: start: 20070401, end: 20070605
  2. HEPARIN SODIUM INJECTION [Suspect]
     Indication: COAGULOPATHY
     Dosage: DOSE UNIT:UNKNOWN
     Route: 042
     Dates: start: 20070401, end: 20070605
  3. VIAMICOCIN [Concomitant]
     Indication: STAPHYLOCOCCAL INFECTION
     Dosage: DOSE UNIT:UNKNOWN
     Route: 065

REACTIONS (5)
  - ARTHRALGIA [None]
  - CHILLS [None]
  - HYPERHIDROSIS [None]
  - NAUSEA [None]
  - PYREXIA [None]
